FAERS Safety Report 9484933 (Version 1)
Quarter: 2013Q3

REPORT INFORMATION
  Report Type: Spontaneous
  Country: US (occurrence: US)
  Receive Date: 20130828
  Receipt Date: 20130828
  Transmission Date: 20140515
  Serious: No
  Sender: FDA-Public Use
  Company Number: US-ABBOTT-13P-163-1122260-00

PATIENT
  Sex: Male
  Weight: 88.53 kg

DRUGS (2)
  1. ANDROGEL [Suspect]
     Indication: BLOOD TESTOSTERONE DECREASED
  2. UNKNOWN CHOLESTEROL MEDICATION [Concomitant]
     Indication: PRODUCT USED FOR UNKNOWN INDICATION

REACTIONS (10)
  - Abnormal behaviour [Not Recovered/Not Resolved]
  - Mood swings [Not Recovered/Not Resolved]
  - Aggression [Not Recovered/Not Resolved]
  - Anger [Unknown]
  - Physical abuse [Unknown]
  - Personality change [Not Recovered/Not Resolved]
  - Promiscuity [Not Recovered/Not Resolved]
  - Drug dependence [Not Recovered/Not Resolved]
  - Partner stress [Not Recovered/Not Resolved]
  - Incorrect drug administration duration [Unknown]
